FAERS Safety Report 25635587 (Version 1)
Quarter: 2025Q3

REPORT INFORMATION
  Report Type: Spontaneous
  Country: EU (occurrence: EU)
  Receive Date: 20250802
  Receipt Date: 20250802
  Transmission Date: 20251021
  Serious: Yes (Other)
  Sender: AMGEN
  Company Number: EU-AMGEN-SWESP2025148448

PATIENT

DRUGS (1)
  1. ADALIMUMAB [Suspect]
     Active Substance: ADALIMUMAB
     Indication: Colitis ulcerative
     Route: 065

REACTIONS (18)
  - Haematological malignancy [Unknown]
  - Cervix carcinoma [Unknown]
  - Malignant urinary tract neoplasm [Unknown]
  - Malignant melanoma [Unknown]
  - Squamous cell carcinoma of skin [Unknown]
  - Lymphoma [Unknown]
  - Basal cell carcinoma [Unknown]
  - Cholangitis sclerosing [Unknown]
  - Colorectal cancer [Unknown]
  - Small intestine carcinoma [Unknown]
  - Pancreatic carcinoma [Unknown]
  - Hepatobiliary cancer [Unknown]
  - Prostate cancer [Unknown]
  - Uterine cancer [Unknown]
  - Brain neoplasm malignant [Unknown]
  - Malignant neoplasm of spinal cord [Unknown]
  - Lung neoplasm malignant [Unknown]
  - Breast cancer [Unknown]
